FAERS Safety Report 6280664-0 (Version None)
Quarter: 2009Q3

REPORT INFORMATION
  Report Type: 
  Country: None (occurrence: None)
  Receive Date: 20090724
  Receipt Date: 20081111
  Transmission Date: 20100115
  Serious: No
  Sender: FDA-Public Use
  Company Number: A0755994A

PATIENT
  Age: 45 Year
  Sex: Male

DRUGS (8)
  1. AVANDIA [Suspect]
     Dosage: 4MG TWICE PER DAY
     Route: 048
     Dates: start: 19990101, end: 20080601
  2. GEMFIBROZIL [Suspect]
     Indication: BLOOD CHOLESTEROL INCREASED
     Dosage: 600MG PER DAY
     Route: 048
     Dates: start: 20070501, end: 20080601
  3. LISINOPRIL [Suspect]
     Dosage: 40MG PER DAY
     Route: 048
     Dates: start: 20070501, end: 20080601
  4. LYRICA [Suspect]
     Indication: NEUROPATHY PERIPHERAL
     Dosage: 150MG TWICE PER DAY
     Route: 048
     Dates: start: 20070501, end: 20080601
  5. METOPROLOL SUCCINATE [Suspect]
     Dosage: 25MG PER DAY
     Route: 048
     Dates: start: 20070501, end: 20080601
  6. METFORMIN HCL [Concomitant]
  7. HUMALOG [Concomitant]
  8. TESTOSTERONE [Concomitant]

REACTIONS (6)
  - ASTHENIA [None]
  - DRUG INTERACTION [None]
  - DYSPNOEA [None]
  - GRIP STRENGTH DECREASED [None]
  - HEART RATE INCREASED [None]
  - SLEEP DISORDER [None]
